FAERS Safety Report 7900654-9 (Version None)
Quarter: 2011Q4

REPORT INFORMATION
  Report Type: 
  Country: None (occurrence: None)
  Receive Date: 20111108
  Receipt Date: 20111101
  Transmission Date: 20120403
  Serious: Yes (Hospitalization, Disabling)
  Sender: FDA-Public Use
  Company Number: JP-B.I. PHARMACEUTICALS,INC./RIDGEFIELD-2011-BP-21720NB

PATIENT
  Sex: Male
  Weight: 63 kg

DRUGS (8)
  1. CANDESARTAN CILEXETIL [Concomitant]
     Indication: HYPERTENSION
     Dosage: 8 MG
     Route: 065
  2. PRADAXA [Suspect]
     Dosage: 220 MG
     Route: 048
     Dates: start: 20110817, end: 20110823
  3. LANIRAPID [Concomitant]
     Indication: ARRHYTHMIA
     Dosage: 0.1 MG
     Route: 065
  4. WARFARIN SODIUM [Suspect]
     Indication: ANTICOAGULANT THERAPY
     Dosage: 3.5 MG
     Route: 048
     Dates: start: 20030101, end: 20110810
  5. MAGNESIUM OXIDE [Concomitant]
     Dosage: 1.5 G
     Route: 065
  6. LASIX [Concomitant]
     Dosage: 20 MG
     Route: 065
  7. NORVASC [Concomitant]
     Indication: HYPERTENSION
     Dosage: 2.5 MG
     Route: 065
  8. FAMOTIDINE [Concomitant]
     Dosage: 10 MG
     Route: 065

REACTIONS (3)
  - SUBDURAL HAEMATOMA [None]
  - DRUG EFFECT DECREASED [None]
  - CEREBRAL INFARCTION [None]
